FAERS Safety Report 10535171 (Version 1)
Quarter: 2014Q4

REPORT INFORMATION
  Report Type: Spontaneous
  Country: PK (occurrence: PK)
  Receive Date: 20141022
  Receipt Date: 20141022
  Transmission Date: 20150529
  Serious: Yes (Other)
  Sender: FDA-Public Use
  Company Number: PHHY2014PK134357

PATIENT
  Age: 26 Year
  Sex: Male

DRUGS (2)
  1. SUCCINYLCHOLINE CHLORIDE. [Suspect]
     Active Substance: SUCCINYLCHOLINE CHLORIDE
     Indication: ENDOTRACHEAL INTUBATION
     Dosage: 10 MG, UNK
     Route: 065
  2. MIDAZOLAM [Concomitant]
     Active Substance: MIDAZOLAM\MIDAZOLAM HYDROCHLORIDE
     Indication: ENDOTRACHEAL INTUBATION
     Route: 065

REACTIONS (6)
  - Brain injury [Unknown]
  - Cerebral ischaemia [Unknown]
  - Hyperkalaemia [Unknown]
  - Apallic syndrome [Unknown]
  - Cardiac arrest [Unknown]
  - Pulseless electrical activity [Unknown]
